FAERS Safety Report 25748475 (Version 3)
Quarter: 2025Q4

REPORT INFORMATION
  Report Type: Spontaneous
  Country: US (occurrence: US)
  Receive Date: 20250902
  Receipt Date: 20251105
  Transmission Date: 20260118
  Serious: Yes (Hospitalization, Other)
  Sender: CSL BEHRING
  Company Number: US-BEH-2025217532

PATIENT
  Age: 33 Year
  Sex: Male
  Weight: 53 kg

DRUGS (12)
  1. MIRCERA [Suspect]
     Active Substance: METHOXY POLYETHYLENE GLYCOL-EPOETIN BETA
     Dosage: 225 ?G (EVERY TWO WEEKS)
     Route: 058
     Dates: start: 20250818
  2. MIRCERA [Suspect]
     Active Substance: METHOXY POLYETHYLENE GLYCOL-EPOETIN BETA
     Dosage: 100 ?G
     Route: 058
     Dates: start: 20221213, end: 20230110
  3. MIRCERA [Suspect]
     Active Substance: METHOXY POLYETHYLENE GLYCOL-EPOETIN BETA
     Dosage: 150 ?G
     Route: 058
     Dates: start: 20230110, end: 20250115
  4. MIRCERA [Suspect]
     Active Substance: METHOXY POLYETHYLENE GLYCOL-EPOETIN BETA
     Dosage: 150 ?G
     Route: 058
     Dates: start: 20250115, end: 20250219
  5. MIRCERA [Suspect]
     Active Substance: METHOXY POLYETHYLENE GLYCOL-EPOETIN BETA
     Dosage: 150 ?G
     Route: 058
     Dates: start: 20250219, end: 20250311
  6. MIRCERA [Suspect]
     Active Substance: METHOXY POLYETHYLENE GLYCOL-EPOETIN BETA
     Dosage: 200 MG
     Route: 058
     Dates: start: 20250311, end: 20250401
  7. MIRCERA [Suspect]
     Active Substance: METHOXY POLYETHYLENE GLYCOL-EPOETIN BETA
     Dosage: 150 ?G
     Route: 058
     Dates: start: 20250401, end: 20250513
  8. MIRCERA [Suspect]
     Active Substance: METHOXY POLYETHYLENE GLYCOL-EPOETIN BETA
     Dosage: 200 ?G
     Route: 058
     Dates: start: 20250513, end: 20250610
  9. MIRCERA [Suspect]
     Active Substance: METHOXY POLYETHYLENE GLYCOL-EPOETIN BETA
     Dosage: 150 ?G
     Route: 058
     Dates: start: 20250610, end: 20250708
  10. MIRCERA [Suspect]
     Active Substance: METHOXY POLYETHYLENE GLYCOL-EPOETIN BETA
     Dosage: 200 ?G
     Route: 058
     Dates: start: 20250708, end: 20250812
  11. MIRCERA [Suspect]
     Active Substance: METHOXY POLYETHYLENE GLYCOL-EPOETIN BETA
     Dosage: 225 ?G
     Route: 058
     Dates: start: 20250812, end: 20250812
  12. MIRCERA [Suspect]
     Active Substance: METHOXY POLYETHYLENE GLYCOL-EPOETIN BETA
     Dosage: 200 ?G
     Route: 058
     Dates: start: 20250812

REACTIONS (2)
  - Anaemia [Not Recovered/Not Resolved]
  - Aplasia pure red cell [Unknown]

NARRATIVE: CASE EVENT DATE: 20250801
